FAERS Safety Report 9478848 (Version 1)
Quarter: 2013Q3

REPORT INFORMATION
  Report Type: Spontaneous
  Country: JP (occurrence: JP)
  Receive Date: 20130827
  Receipt Date: 20130827
  Transmission Date: 20140515
  Serious: Yes (Other)
  Sender: FDA-Public Use
  Company Number: PHHY2013JP090876

PATIENT
  Age: 30 Year
  Sex: Male

DRUGS (2)
  1. ZONISAMIDE [Suspect]
     Indication: EPILEPSY
     Dosage: 200 MG PER DAY
  2. VALPROIC ACID [Suspect]
     Indication: EPILEPSY
     Dosage: 600 MG PER DAY

REACTIONS (3)
  - Calculus urinary [Unknown]
  - Back pain [Unknown]
  - Drug effect incomplete [Unknown]
